FAERS Safety Report 7388291-9 (Version None)
Quarter: 2011Q1

REPORT INFORMATION
  Report Type: 
  Country: None (occurrence: None)
  Receive Date: 20110329
  Receipt Date: 20110329
  Transmission Date: 20110831
  Serious: Yes (Hospitalization)
  Sender: FDA-Public Use
  Company Number: None

PATIENT
  Sex: Male
  Weight: 56 kg

DRUGS (1)
  1. TENOFOVIR DISOPROXIL FUMARATE [Suspect]
     Indication: HIV INFECTION
     Dosage: 300 MG Q24H P.O. - ORAL
     Route: 048

REACTIONS (1)
  - FANCONI SYNDROME [None]
